FAERS Safety Report 6419203-X (Version None)
Quarter: 2009Q4

REPORT INFORMATION
  Report Type: 
  Country: None (occurrence: None)
  Receive Date: 20091029
  Receipt Date: 20091021
  Transmission Date: 20100525
  Serious: Yes (Hospitalization)
  Sender: FDA-Public Use
  Company Number: US-KINGPHARMUSA00001-K200901298

PATIENT
  Age: 72 Year
  Sex: Male

DRUGS (10)
  1. ALTACE [Suspect]
     Indication: HYPERTENSION
     Dosage: 5 MG IN AM AND 2.5 MG IN PM, QD
     Route: 048
     Dates: start: 20090201, end: 20091001
  2. FELODIPINE [Suspect]
     Indication: HYPERTENSION
     Dosage: 5 MG AM 2.5 MG PM, QD
     Route: 048
     Dates: start: 20090201, end: 20091001
  3. ALDACTONE [Concomitant]
     Indication: OEDEMA
     Dosage: 25 MG, UNK
     Route: 048
  4. ASPIRIN [Concomitant]
     Indication: PROPHYLAXIS
     Dosage: 100 MG, UNK
     Route: 048
  5. BERLINSULIN [Concomitant]
     Indication: TYPE 2 DIABETES MELLITUS
     Dosage: 48 IU, UNK
     Route: 058
  6. BIKALM [Concomitant]
     Indication: SLEEP DISORDER
     Dosage: 5 MG, UNK
     Route: 048
     Dates: start: 20070101
  7. LEVEMIR [Concomitant]
     Indication: TYPE 2 DIABETES MELLITUS
     Dosage: 18 IU, UNK
     Route: 058
  8. METOHEXAL [Concomitant]
     Indication: HYPERTENSION
     Dosage: 190 MG, UNK
     Route: 048
  9. PENTAERYTHRITOL TETRANITRATE [Concomitant]
     Indication: ANGINA PECTORIS
     Dosage: 160 MG, UNK
     Route: 048
  10. TORSEMIDE [Concomitant]
     Indication: HYPERTENSION
     Dosage: 10 MG, UNK
     Route: 048

REACTIONS (2)
  - DYSPNOEA [None]
  - NASAL DRYNESS [None]
